FAERS Safety Report 8984164 (Version 1)
Quarter: 2012Q4

REPORT INFORMATION
  Report Type: 
  Country: FR (occurrence: FR)
  Receive Date: 20121226
  Receipt Date: 20121226
  Transmission Date: 20130627
  Serious: Yes (Hospitalization, Other)
  Sender: FDA-Public Use
  Company Number: PHHY2012FR118650

PATIENT
  Age: 72 Year
  Sex: Female

DRUGS (15)
  1. COTAREG [Suspect]
     Indication: HYPERTENSION
     Dosage: UNK UKN, QD
     Route: 048
     Dates: start: 20121031
  2. PROFENID [Suspect]
     Indication: SURGERY
     Dosage: 50 mg, QID
     Route: 042
     Dates: start: 20121030, end: 20121031
  3. LYRICA [Suspect]
     Indication: SURGERY
     Dosage: 75 mg, BID
     Route: 048
     Dates: start: 20121030, end: 20121101
  4. CEFAZOLINE [Suspect]
     Indication: SURGERY
     Dosage: 3 g, QD
     Route: 042
     Dates: start: 20121030, end: 20121030
  5. RIVOTRIL [Concomitant]
     Dosage: 7 gtt, (at night)
     Route: 048
  6. XALATAN [Concomitant]
     Dosage: 1 DF, UNK (at night in both eyes)
     Route: 047
  7. LEVOTHYROX [Concomitant]
     Dosage: 75 ug, QD (in the moring)
     Route: 048
  8. LOVENOX [Concomitant]
     Indication: SURGERY
     Dosage: 1 DF, QD (400 IU/ 0.4 ml)
     Route: 058
     Dates: start: 20121030, end: 20121030
  9. TOPALGIC [Concomitant]
     Indication: SURGERY
     Dosage: 2 DF, Q8H
     Route: 048
     Dates: start: 20121030
  10. MORPHINE [Concomitant]
     Indication: SURGERY
     Dosage: 5 DF, UNK
     Route: 042
     Dates: start: 20121030, end: 20121030
  11. ACTISKENAN [Concomitant]
     Indication: SURGERY
     Dosage: 1 DF, daily (10 or 15 mg, 6 times daily)
     Dates: start: 20121030
  12. DROLEPTAN [Concomitant]
     Indication: SURGERY
     Dosage: 1 ml, UNK (every 7 minutes)
     Route: 042
     Dates: start: 20121030, end: 20121030
  13. EUPANTOL [Concomitant]
     Indication: SURGERY
     Dosage: 20 mg, QD
     Route: 048
     Dates: start: 20121030
  14. PERFALGAN [Concomitant]
     Indication: SURGERY
     Dosage: 1 g, Q6H
     Route: 042
     Dates: start: 20121030, end: 20121030
  15. DOLIPRAN//PARACETAMOL [Concomitant]
     Indication: SURGERY
     Dosage: 500 mg, BID
     Route: 048
     Dates: start: 20121030

REACTIONS (9)
  - Renal failure [Recovered/Resolved]
  - Creatinine renal clearance decreased [Recovered/Resolved]
  - Polyuria [Unknown]
  - Haematemesis [Unknown]
  - Haemoglobin decreased [Unknown]
  - Dyspnoea [Unknown]
  - Oxygen saturation decreased [Recovered/Resolved]
  - Blood potassium increased [Recovered/Resolved]
  - Hypotension [Unknown]
